FAERS Safety Report 20176584 (Version 1)
Quarter: 2021Q4

REPORT INFORMATION
  Report Type: Spontaneous
  Country: US (occurrence: US)
  Receive Date: 20211213
  Receipt Date: 20211213
  Transmission Date: 20220303
  Serious: No
  Sender: FDA-Public Use
  Company Number: US-009507513-2112USA003314

PATIENT
  Age: 54 Year
  Sex: Male
  Weight: 101 kg

DRUGS (4)
  1. INVANZ [Suspect]
     Active Substance: ERTAPENEM SODIUM
     Indication: Necrosis
     Dosage: UNK; DURATION OF REGIMEN: 7 DAYS
  2. INVANZ [Suspect]
     Active Substance: ERTAPENEM SODIUM
     Indication: Skin ulcer
  3. INVANZ [Suspect]
     Active Substance: ERTAPENEM SODIUM
     Indication: Citrobacter infection
  4. INVANZ [Suspect]
     Active Substance: ERTAPENEM SODIUM
     Indication: Wound infection bacterial

REACTIONS (1)
  - Product use in unapproved indication [Unknown]
